FAERS Safety Report 24798332 (Version 2)
Quarter: 2025Q1

REPORT INFORMATION
  Report Type: Report from Study
  Country: ES (occurrence: ES)
  Receive Date: 20250102
  Receipt Date: 20250111
  Transmission Date: 20250409
  Serious: Yes (Death)
  Sender: AUROBINDO
  Company Number: ES-AUROBINDO-AUR-APL-2024-064794

PATIENT
  Age: 68 Year
  Sex: Male

DRUGS (3)
  1. AZACITIDINE [Suspect]
     Active Substance: AZACITIDINE
     Indication: Myelodysplastic syndrome
     Route: 065
     Dates: start: 200706, end: 201507
  2. AZACITIDINE [Suspect]
     Active Substance: AZACITIDINE
     Indication: Acute myeloid leukaemia
  3. FLUCONAZOLE [Concomitant]
     Active Substance: FLUCONAZOLE
     Indication: Candida infection

REACTIONS (3)
  - Fungal infection [Fatal]
  - Candida infection [Fatal]
  - Drug ineffective [Fatal]
